FAERS Safety Report 26001259 (Version 1)
Quarter: 2025Q4

REPORT INFORMATION
  Report Type: Report from Study
  Country: US (occurrence: US)
  Receive Date: 20251105
  Receipt Date: 20251105
  Transmission Date: 20260117
  Serious: Yes (Other)
  Sender: JOHNSON AND JOHNSON
  Company Number: US-JNJFOC-20251033416

PATIENT
  Age: 43 Year
  Sex: Male

DRUGS (1)
  1. TREMFYA [Suspect]
     Active Substance: GUSELKUMAB
     Indication: Colitis ulcerative
     Dosage: 3RD INFUSION ON 07-OCT-2025
     Dates: start: 202507

REACTIONS (1)
  - Myasthenia gravis [Not Recovered/Not Resolved]

NARRATIVE: CASE EVENT DATE: 20251013
